FAERS Safety Report 4538127-6 (Version None)
Quarter: 2004Q4

REPORT INFORMATION
  Report Type: 
  Country: None (occurrence: None)
  Receive Date: 20041221
  Receipt Date: 20041126
  Transmission Date: 20050328
  Serious: Yes (Other)
  Sender: FDA-Public Use
  Company Number: 2004S1003548

PATIENT
  Age: 11 Year
  Sex: Female

DRUGS (1)
  1. CYSTAGON [Suspect]
     Indication: CYSTINOSIS
     Dosage: 90MG/KG/DAY, THEN 50MG/KG/D, ORAL
     Route: 048
     Dates: start: 19960502

REACTIONS (4)
  - DIALYSIS [None]
  - MASS [None]
  - OSTEOSCLEROSIS [None]
  - SKIN LESION [None]
